FAERS Safety Report 26058136 (Version 1)
Quarter: 2025Q4

REPORT INFORMATION
  Report Type: Spontaneous
  Country: US (occurrence: US)
  Receive Date: 20251118
  Receipt Date: 20251118
  Transmission Date: 20260118
  Serious: No
  Sender: AUROBINDO
  Company Number: US-AUROBINDO-AUR-APL-2025-044626

PATIENT
  Sex: Female

DRUGS (1)
  1. CLONAZEPAM [Suspect]
     Active Substance: CLONAZEPAM
     Indication: Product used for unknown indication
     Dosage: 1 MILLIGRAM, FOUR TIMES/DAY
     Route: 065

REACTIONS (7)
  - Headache [Unknown]
  - Pruritus [Unknown]
  - Vomiting [Unknown]
  - Product quality issue [Unknown]
  - Product dispensing error [Unknown]
  - Incorrect dose administered [Unknown]
  - Therapeutic response changed [Unknown]
